FAERS Safety Report 11182254 (Version 2)
Quarter: 2015Q2

REPORT INFORMATION
  Report Type: Spontaneous
  Country: US (occurrence: US)
  Receive Date: 20150611
  Receipt Date: 20150619
  Transmission Date: 20150821
  Serious: Yes (Other)
  Sender: FDA-Public Use
  Company Number: US-ASTELLAS-2015US010227

PATIENT
  Age: 86 Year
  Sex: Male

DRUGS (1)
  1. XTANDI [Suspect]
     Active Substance: ENZALUTAMIDE
     Indication: PROSTATE CANCER
     Dosage: 160 MG (4 X 40 MG), ONCE DAILY
     Route: 048
     Dates: start: 20141216, end: 20150509

REACTIONS (4)
  - Confusional state [Recovering/Resolving]
  - Haemorrhage urinary tract [Recovered/Resolved]
  - Peripheral swelling [Recovering/Resolving]
  - Dizziness [Recovering/Resolving]

NARRATIVE: CASE EVENT DATE: 20141230
